FAERS Safety Report 5008024-0 (Version None)
Quarter: 2006Q2

REPORT INFORMATION
  Report Type: 
  Country: None (occurrence: None)
  Receive Date: 20060404
  Receipt Date: 20050616
  Transmission Date: 20061013
  Serious: Yes (Hospitalization, Other)
  Sender: FDA-Public Use
  Company Number: 2005063312

PATIENT
  Age: 61 Year
  Sex: Male
  Weight: 87.5442 kg

DRUGS (10)
  1. GEODON [Suspect]
     Indication: SCHIZOPHRENIA
     Dosage: 120 MG (60 MG, 2 IN 1 D), ORAL
     Route: 048
     Dates: end: 20050316
  2. SEROQUEL [Suspect]
     Indication: SCHIZOPHRENIA
     Dosage: 200 MG (200 MG, 1 IN 1 D, ORAL)
     Route: 048
     Dates: end: 20050316
  3. DEPAKOTE [Suspect]
     Indication: ILL-DEFINED DISORDER
     Dosage: 750 MG (250 MG, 3 IN 1 D)
     Dates: end: 20050101
  4. INSULIN GLARGINE (INSULIN GLARGINE) [Concomitant]
  5. CIPROFLOXACIN [Concomitant]
  6. TAMSULOSIN HCL [Concomitant]
  7. PEPCID AC [Concomitant]
  8. VITAMIN E [Concomitant]
  9. METFORMIN [Concomitant]
  10. AVANDIA [Concomitant]

REACTIONS (5)
  - ANAEMIA [None]
  - DEHYDRATION [None]
  - ELECTROLYTE IMBALANCE [None]
  - LYMPHADENOPATHY [None]
  - THROMBOCYTOPENIA [None]
